FAERS Safety Report 16023189 (Version 1)
Quarter: 2019Q1

REPORT INFORMATION
  Report Type: Spontaneous
  Country: PT (occurrence: PT)
  Receive Date: 20190301
  Receipt Date: 20190301
  Transmission Date: 20190418
  Serious: Yes (Other)
  Sender: FDA-Public Use
  Company Number: IND-PT-009507513-1902PRT010799

PATIENT
  Age: 66 Year
  Sex: Male

DRUGS (1)
  1. TUROX [Suspect]
     Active Substance: ETORICOXIB
     Indication: ARTHRALGIA
     Dosage: 1TB PER DAY (FORMULATION: FILM COATED TABLET)
     Route: 048
     Dates: start: 20190208, end: 20190208

REACTIONS (6)
  - Urticaria [Recovering/Resolving]
  - Dermatitis bullous [Recovering/Resolving]
  - Lip oedema [Recovering/Resolving]
  - Periorbital oedema [Recovering/Resolving]
  - Rash [Recovering/Resolving]
  - Angioedema [Recovering/Resolving]

NARRATIVE: CASE EVENT DATE: 20190209
